FAERS Safety Report 10189227 (Version 1)
Quarter: 2014Q2

REPORT INFORMATION
  Report Type: Spontaneous
  Country: US (occurrence: None)
  Receive Date: 20140521
  Receipt Date: 20140521
  Transmission Date: 20141212
  Serious: Yes (Other)
  Sender: FDA-Public Use
  Company Number: None

PATIENT
  Age: 26 Year
  Sex: Male
  Weight: 86.18 kg

DRUGS (1)
  1. STRATTERA [Suspect]
     Indication: ATTENTION DEFICIT/HYPERACTIVITY DISORDER
     Dosage: 1 PILL
     Route: 048
     Dates: start: 20140502, end: 20140503

REACTIONS (10)
  - Fatigue [None]
  - Somnolence [None]
  - Premature ejaculation [None]
  - Dysuria [None]
  - Somnolence [None]
  - Vision blurred [None]
  - Pupil fixed [None]
  - Photophobia [None]
  - Activities of daily living impaired [None]
  - Ejaculation disorder [None]
